FAERS Safety Report 23601229 (Version 1)
Quarter: 2024Q1

REPORT INFORMATION
  Report Type: Spontaneous
  Country: FR (occurrence: FR)
  Receive Date: 20240306
  Receipt Date: 20240306
  Transmission Date: 20240410
  Serious: Yes (Hospitalization)
  Sender: FDA-Public Use
  Company Number: None

PATIENT
  Age: 52 Year
  Sex: Male

DRUGS (3)
  1. CIPROFLOXACIN [Suspect]
     Active Substance: CIPROFLOXACIN
     Indication: Septic shock
     Route: 048
     Dates: start: 20220907, end: 20221001
  2. AMOXICILLIN [Suspect]
     Active Substance: AMOXICILLIN
     Indication: Septic shock
     Route: 048
     Dates: start: 20220907, end: 20221001
  3. BACTRIM [Suspect]
     Active Substance: SULFAMETHOXAZOLE\TRIMETHOPRIM
     Indication: Septic shock
     Route: 048
     Dates: start: 20220907, end: 20220929

REACTIONS (2)
  - Rash maculo-papular [Recovered/Resolved]
  - Drug reaction with eosinophilia and systemic symptoms [Recovered/Resolved]

NARRATIVE: CASE EVENT DATE: 20220928
